FAERS Safety Report 18627558 (Version 2)
Quarter: 2020Q4

REPORT INFORMATION
  Report Type: Spontaneous
  Country: US (occurrence: US)
  Receive Date: 20201217
  Receipt Date: 20201222
  Transmission Date: 20210114
  Serious: No
  Sender: FDA-Public Use
  Company Number: US-BIOGEN-2020BI00931197

PATIENT
  Sex: Male

DRUGS (5)
  1. TURMERIC [Concomitant]
     Active Substance: HERBALS\TURMERIC
     Route: 065
  2. VITAMIN D3 [Concomitant]
     Active Substance: CHOLECALCIFEROL
     Route: 065
  3. TECFIDERA [Suspect]
     Active Substance: DIMETHYL FUMARATE
     Indication: RELAPSING-REMITTING MULTIPLE SCLEROSIS
     Dosage: TAKE 1 CAPSULE BY MOUTH TWICE A DAY
     Route: 048
     Dates: start: 202002
  4. TECFIDERA [Suspect]
     Active Substance: DIMETHYL FUMARATE
     Route: 048
     Dates: start: 2020
  5. VITAMIN B12 [Concomitant]
     Active Substance: CYANOCOBALAMIN
     Route: 065

REACTIONS (11)
  - Rhinorrhoea [Not Recovered/Not Resolved]
  - Erythema [Not Recovered/Not Resolved]
  - Multiple sclerosis relapse [Unknown]
  - Secondary progressive multiple sclerosis [Unknown]
  - White blood cell count decreased [Not Recovered/Not Resolved]
  - Drug ineffective [Unknown]
  - Upper-airway cough syndrome [Not Recovered/Not Resolved]
  - Malaise [Unknown]
  - Dysphonia [Unknown]
  - Fatigue [Unknown]
  - Rash [Not Recovered/Not Resolved]
